FAERS Safety Report 9280762 (Version 2)
Quarter: 2013Q3

REPORT INFORMATION
  Report Type: Spontaneous
  Country: US (occurrence: US)
  Receive Date: 20130509
  Receipt Date: 20130717
  Transmission Date: 20140515
  Serious: No
  Sender: FDA-Public Use
  Company Number: US-PFIZER INC-2013140384

PATIENT
  Age: 49 Year
  Sex: Female
  Weight: 61.2 kg

DRUGS (1)
  1. LEVOXYL [Suspect]
     Indication: HYPOTHYROIDISM
     Dosage: HALF OF 25 MCG TABLET IN MORNING, 25 MCG BEFORE LUNCH AND THEN 25 MCG AT 3:00 PM
     Dates: start: 1998

REACTIONS (2)
  - Blood thyroid stimulating hormone increased [Unknown]
  - Weight increased [Unknown]
